FAERS Safety Report 5344272-8 (Version None)
Quarter: 2007Q2

REPORT INFORMATION
  Report Type: 
  Country: None (occurrence: None)
  Receive Date: 20070416
  Receipt Date: 20070107
  Transmission Date: 20071010
  Serious: No
  Sender: FDA-Public Use
  Company Number: 2007SP000069

PATIENT
  Age: 69 Year
  Sex: Male
  Weight: 97.0698 kg

DRUGS (3)
  1. LUNESTA [Suspect]
     Indication: INSOMNIA
     Dosage: 2 MG; ORAL
     Route: 048
     Dates: start: 20070104
  2. METOPROLOL SUCCINATE [Concomitant]
  3. ATACAND [Concomitant]

REACTIONS (1)
  - GOUT [None]
